FAERS Safety Report 21350756 (Version 1)
Quarter: 2022Q3

REPORT INFORMATION
  Report Type: Spontaneous
  Country: US (occurrence: US)
  Receive Date: 20220919
  Receipt Date: 20220919
  Transmission Date: 20221027
  Serious: Yes (Other)
  Sender: FDA-Public Use
  Company Number: US-PFIZER INC-202201166544

PATIENT
  Age: 69 Year
  Sex: Female
  Weight: 53.98 kg

DRUGS (3)
  1. PAXLOVID [Suspect]
     Active Substance: NIRMATRELVIR\RITONAVIR
     Indication: COVID-19 treatment
     Dosage: TOOK ONE DOSE WITH NO REPEAT
     Dates: start: 20220912, end: 202209
  2. PAXLOVID [Suspect]
     Active Substance: NIRMATRELVIR\RITONAVIR
     Indication: Asthma
  3. PAXLOVID [Suspect]
     Active Substance: NIRMATRELVIR\RITONAVIR
     Indication: Lyme disease

REACTIONS (6)
  - Renal pain [Recovered/Resolved]
  - Abdominal pain upper [Recovered/Resolved]
  - Reflux gastritis [Recovered/Resolved]
  - Nausea [Unknown]
  - Pyrexia [Unknown]
  - Bone pain [Unknown]

NARRATIVE: CASE EVENT DATE: 20220912
